FAERS Safety Report 11519397 (Version 1)
Quarter: 2015Q3

REPORT INFORMATION
  Report Type: Report from Study
  Country: US (occurrence: US)
  Receive Date: 20150918
  Receipt Date: 20150918
  Transmission Date: 20151125
  Serious: Yes (Other)
  Sender: FDA-Public Use
  Company Number: US-AMGEN-USASL2015095044

PATIENT
  Age: 30 Year
  Sex: Female

DRUGS (1)
  1. ENBREL [Suspect]
     Active Substance: ETANERCEPT
     Indication: RHEUMATOID ARTHRITIS
     Dosage: UNK UNK, UNK
     Route: 065
     Dates: start: 20150807

REACTIONS (16)
  - Gait disturbance [Recovered/Resolved]
  - Morphoea [Unknown]
  - Pyrexia [Recovered/Resolved]
  - Systemic lupus erythematosus [Unknown]
  - Injection site pain [Unknown]
  - Malaise [Recovered/Resolved]
  - Nausea [Unknown]
  - Mobility decreased [Recovered/Resolved]
  - Hyperhidrosis [Recovered/Resolved]
  - Scleral disorder [Unknown]
  - Joint swelling [Recovered/Resolved]
  - Discomfort [Recovered/Resolved]
  - Abdominal discomfort [Recovered/Resolved]
  - Musculoskeletal stiffness [Recovered/Resolved]
  - Lethargy [Recovered/Resolved]
  - Injection site extravasation [Unknown]

NARRATIVE: CASE EVENT DATE: 2015
